FAERS Safety Report 9448051 (Version 2)
Quarter: 2013Q3

REPORT INFORMATION
  Report Type: Spontaneous
  Country: US (occurrence: US)
  Receive Date: 20130808
  Receipt Date: 20130903
  Transmission Date: 20140515
  Serious: No
  Sender: FDA-Public Use
  Company Number: US-009507513-1308USA003190

PATIENT
  Sex: Female
  Weight: 77.98 kg

DRUGS (3)
  1. MIRALAX [Suspect]
     Indication: CONSTIPATION
     Dosage: 17 G, QD
     Route: 048
     Dates: start: 200912
  2. MIRALAX [Suspect]
     Indication: MEDICAL OBSERVATION
  3. KLONOPIN [Concomitant]
     Indication: MUSCLE SPASMS
     Dosage: UNK, UNKNOWN

REACTIONS (2)
  - Accidental overdose [Unknown]
  - Incorrect drug administration duration [Unknown]
